FAERS Safety Report 7273687-6 (Version None)
Quarter: 2011Q1

REPORT INFORMATION
  Report Type: 
  Country: None (occurrence: None)
  Receive Date: 20110203
  Receipt Date: 20110126
  Transmission Date: 20110831
  Serious: Yes (Hospitalization)
  Sender: FDA-Public Use
  Company Number: AU-AMGEN-QUU256168

PATIENT
  Age: 78 Year
  Sex: Female
  Weight: 65 kg

DRUGS (5)
  1. NEULASTA [Suspect]
     Indication: CHEMOTHERAPY
     Dosage: 6 MG, UNK
     Route: 058
     Dates: start: 20070907
  2. RITUXIMAB [Suspect]
     Dosage: 60 MG, UNK
     Route: 042
     Dates: start: 20070906, end: 20070906
  3. DOXORUBICIN HYDROCHLORIDE [Suspect]
     Dosage: 78 MG, UNK
     Route: 042
     Dates: start: 20070906, end: 20070906
  4. CYCLOPHOSPHAMIDE [Suspect]
     Dosage: 118 MG, UNK
     Route: 042
     Dates: start: 20070906, end: 20070906
  5. VINCRISTINE SULFATE [Suspect]
     Dosage: 2 MG, UNK
     Route: 042
     Dates: start: 20070906, end: 20070906

REACTIONS (2)
  - DRUG INEFFECTIVE [None]
  - FEBRILE NEUTROPENIA [None]
